FAERS Safety Report 8216624-X (Version None)
Quarter: 2012Q1

REPORT INFORMATION
  Report Type: 
  Country: None (occurrence: None)
  Receive Date: 20120316
  Receipt Date: 20120307
  Transmission Date: 20120608
  Serious: No
  Sender: FDA-Public Use
  Company Number: US-PFIZER INC-2012045676

PATIENT
  Age: 18 Year
  Sex: Female

DRUGS (1)
  1. EPIPEN [Suspect]
     Dosage: .3 MG, AS NEEDED

REACTIONS (1)
  - INJURY ASSOCIATED WITH DEVICE [None]
